FAERS Safety Report 11050787 (Version 2)
Quarter: 2015Q2

REPORT INFORMATION
  Report Type: Spontaneous
  Country: US (occurrence: None)
  Receive Date: 20150417
  Receipt Date: 20150520
  Transmission Date: 20150821
  Serious: Yes (Hospitalization)
  Sender: FDA-Public Use
  Company Number: DEP_02644_2015

PATIENT
  Age: 58 Year
  Sex: Female
  Weight: 78.02 kg

DRUGS (31)
  1. MEREPIDINE [Suspect]
     Active Substance: MEPERIDINE
     Indication: PRODUCT USED FOR UNKNOWN INDICATION
  2. FLUMAZENIL. [Suspect]
     Active Substance: FLUMAZENIL
  3. METFORMIN [Concomitant]
     Active Substance: METFORMIN HYDROCHLORIDE
  4. VITORIN [Concomitant]
  5. RESTASIS [Concomitant]
     Active Substance: CYCLOSPORINE
  6. EPHEDRINE [Concomitant]
     Active Substance: EPHEDRINE
  7. CYCLOBENZAPRINE [Suspect]
     Active Substance: CYCLOBENZAPRINE
     Indication: PRODUCT USED FOR UNKNOWN INDICATION
     Dosage: DF
  8. POLYETHYLENE GLUCOL [Concomitant]
     Active Substance: POLYETHYLENE GLYCOLS
  9. ALIGN [Concomitant]
     Active Substance: BIFIDOBACTERIUM LONGUM SUBSP. INFANTIS
  10. FENTANYL. [Suspect]
     Active Substance: FENTANYL
     Indication: PAIN
     Dosage: INTRAVENOUS (NOT OTHERWISE SPECIFIED)
     Route: 042
     Dates: start: 20150126, end: 20150126
  11. NARCAN [Concomitant]
     Active Substance: NALOXONE HYDROCHLORIDE
  12. WELLBUTRIN [Suspect]
     Active Substance: BUPROPION HYDROCHLORIDE
     Indication: ANXIOLYTIC THERAPY
     Dosage: 75 MG, 5-6 YEARS AGO ORAL
     Route: 048
     Dates: start: 2008
  13. PROZAC [Suspect]
     Active Substance: FLUOXETINE HYDROCHLORIDE
     Indication: ANTIDEPRESSANT THERAPY
     Route: 048
     Dates: start: 2008
  14. IBUPROFEN. [Concomitant]
     Active Substance: IBUPROFEN
  15. BABY ASPIRIN [Concomitant]
     Active Substance: ASPIRIN
  16. BENADRYL [Suspect]
     Active Substance: DIPHENHYDRAMINE HYDROCHLORIDE
     Indication: PRODUCT USED FOR UNKNOWN INDICATION
  17. WELLBUTRIN [Suspect]
     Active Substance: BUPROPION HYDROCHLORIDE
     Indication: SMOKING CESSATION THERAPY
     Dosage: 75 MG, 5-6 YEARS AGO ORAL
     Route: 048
     Dates: start: 2008
  18. MORPHINE 15 MG [Suspect]
     Active Substance: MORPHINE
     Indication: PAIN
     Dosage: DF
     Route: 048
     Dates: start: 2010
  19. MORPHINE 15 MG [Suspect]
     Active Substance: MORPHINE
     Indication: POST HERPETIC NEURALGIA
     Dosage: DF
     Route: 048
     Dates: start: 2010
  20. DILAUDID [Suspect]
     Active Substance: HYDROMORPHONE HYDROCHLORIDE
     Indication: PROCEDURAL PAIN
     Dosage: DF SWITCHING BACK AND FORTH WITH NUCYNTA ORAL
     Dates: start: 20150129
  21. TRAMADOL [Suspect]
     Active Substance: TRAMADOL
     Indication: PRODUCT USED FOR UNKNOWN INDICATION
     Dosage: DF
  22. PROPOFOL. [Suspect]
     Active Substance: PROPOFOL
     Indication: PRODUCT USED FOR UNKNOWN INDICATION
  23. PROMETHAZINE [Suspect]
     Active Substance: PROMETHAZINE\PROMETHAZINE HYDROCHLORIDE
     Indication: PRODUCT USED FOR UNKNOWN INDICATION
     Dosage: DF
  24. LIDOCAINE. [Concomitant]
     Active Substance: LIDOCAINE
  25. DOCUSATE [Concomitant]
     Active Substance: DOCUSATE
  26. NUCYNTA [Suspect]
     Active Substance: TAPENTADOL HYDROCHLORIDE
     Indication: PROCEDURAL PAIN
     Dosage: (50-100 MG, EVERY 3 HOURS, AS NEEDED ORAL)?
     Route: 048
     Dates: start: 20150126, end: 20150130
  27. MORPHINE 15 MG [Suspect]
     Active Substance: MORPHINE
     Indication: NERVOUS SYSTEM DISORDER
     Dosage: DF
     Route: 048
     Dates: start: 2010
  28. GRALISE [Suspect]
     Active Substance: GABAPENTIN
     Indication: POST HERPETIC NEURALGIA
     Dosage: DF(1800 MG, WITH THE EVENING MEAL, ORAL)?
     Route: 048
     Dates: start: 201404
  29. DEMEROL [Suspect]
     Active Substance: MEPERIDINE HYDROCHLORIDE
     Indication: PRODUCT USED FOR UNKNOWN INDICATION
     Dosage: DF
  30. ZOFRAN [Suspect]
     Active Substance: ONDANSETRON HYDROCHLORIDE
     Indication: NAUSEA
     Dosage: 4 MG, INTRAVENOUS (NOT OTHERWISE SPECIFIED)
     Route: 042
     Dates: start: 20150125, end: 20150126
  31. VALIUM [Concomitant]
     Active Substance: DIAZEPAM

REACTIONS (17)
  - Nausea [None]
  - Vomiting [None]
  - Vision blurred [None]
  - Pollakiuria [None]
  - Weight decreased [None]
  - Blindness transient [None]
  - Labelled drug-drug interaction medication error [None]
  - Feeling abnormal [None]
  - Procedural pain [None]
  - Fall [None]
  - Retching [None]
  - Serotonin syndrome [None]
  - Drug effect decreased [None]
  - Pain [None]
  - Screaming [None]
  - Arthropathy [None]
  - Decreased appetite [None]

NARRATIVE: CASE EVENT DATE: 20150126
